FAERS Safety Report 17515915 (Version 1)
Quarter: 2020Q1

REPORT INFORMATION
  Report Type: Spontaneous
  Country: DE (occurrence: DE)
  Receive Date: 20200309
  Receipt Date: 20200309
  Transmission Date: 20200409
  Serious: Yes (Hospitalization, Other)
  Sender: FDA-Public Use
  Company Number: DE-009507513-2003DEU001307

PATIENT
  Sex: Male

DRUGS (2)
  1. KEYTRUDA [Suspect]
     Active Substance: PEMBROLIZUMAB
     Indication: NON-SMALL CELL LUNG CANCER
  2. CRIZOTINIB [Suspect]
     Active Substance: CRIZOTINIB
     Dosage: UNK
     Dates: start: 2014

REACTIONS (9)
  - Drug intolerance [Unknown]
  - Phlebitis [Unknown]
  - Injury [Unknown]
  - Erysipelas [Unknown]
  - Deep vein thrombosis [Unknown]
  - Peripheral swelling [Unknown]
  - Erythema [Unknown]
  - Adverse event [Unknown]
  - Erysipelas [Unknown]

NARRATIVE: CASE EVENT DATE: 2014
